FAERS Safety Report 10066294 (Version 1)
Quarter: 2014Q2

REPORT INFORMATION
  Report Type: Spontaneous
  Country: GB (occurrence: GB)
  Receive Date: 20140408
  Receipt Date: 20140408
  Transmission Date: 20141212
  Serious: Yes (Disabling, Other)
  Sender: FDA-Public Use
  Company Number: GB-BRISTOL-MYERS SQUIBB COMPANY-20587044

PATIENT
  Age: 50 Year
  Sex: Female
  Weight: 99 kg

DRUGS (7)
  1. METFORMIN HCL [Suspect]
     Route: 048
     Dates: start: 20140121, end: 20140202
  2. CO-CODAMOL [Concomitant]
     Indication: PAIN
     Route: 048
  3. GLICLAZIDE [Concomitant]
     Route: 048
  4. HUMULIN I [Concomitant]
     Indication: DIABETES MELLITUS
     Route: 058
     Dates: start: 200401
  5. LANSOPRAZOLE [Concomitant]
     Indication: GASTRIC DISORDER
     Route: 048
  6. RAMIPRIL [Concomitant]
     Indication: PROPHYLAXIS
     Route: 048
  7. SIMVASTATIN [Concomitant]
     Indication: HYPERCHOLESTEROLAEMIA
     Route: 048

REACTIONS (5)
  - Dyspnoea [Recovering/Resolving]
  - Wheezing [Recovering/Resolving]
  - Swelling face [Recovering/Resolving]
  - Swelling [Recovering/Resolving]
  - Weight increased [Recovering/Resolving]
